FAERS Safety Report 21458284 (Version 7)
Quarter: 2023Q1

REPORT INFORMATION
  Report Type: Spontaneous
  Country: US (occurrence: US)
  Receive Date: 20221014
  Receipt Date: 20230316
  Transmission Date: 20230417
  Serious: No
  Sender: FDA-Public Use
  Company Number: US-PFIZER INC-PV202200082362

PATIENT
  Age: 90 Year
  Sex: Female

DRUGS (1)
  1. IBRANCE [Suspect]
     Active Substance: PALBOCICLIB
     Dosage: 125 MG

REACTIONS (8)
  - Fatigue [Recovering/Resolving]
  - Constipation [Recovered/Resolved]
  - Dry skin [Recovering/Resolving]
  - Malaise [Unknown]
  - Rash [Unknown]
  - Product dose omission issue [Unknown]
  - Pruritus [Unknown]
  - White blood cell count decreased [Unknown]

NARRATIVE: CASE EVENT DATE: 20221228
